FAERS Safety Report 14974992 (Version 1)
Quarter: 2018Q2

REPORT INFORMATION
  Report Type: Spontaneous
  Country: US (occurrence: US)
  Receive Date: 20180605
  Receipt Date: 20180605
  Transmission Date: 20180711
  Serious: No
  Sender: FDA-Public Use
  Company Number: US-PFIZER INC-2018109492

PATIENT
  Age: 41 Year
  Sex: Female
  Weight: 63.49 kg

DRUGS (3)
  1. PARAPLATIN [Concomitant]
     Active Substance: CARBOPLATIN
     Dosage: UNK
  2. DOCETAXEL. [Suspect]
     Active Substance: DOCETAXEL
     Indication: BREAST CANCER
     Dosage: UNK UNK, CYCLIC (CYCLES:06 EVERY THREE WEEKS)
     Dates: start: 20100831, end: 201012
  3. TAXOTERE [Suspect]
     Active Substance: DOCETAXEL
     Indication: BREAST CANCER
     Dosage: UNK UNK, CYCLIC (CYCLES: 06 EVERY THREE WEEKS)
     Dates: start: 20100831, end: 201012

REACTIONS (5)
  - Hair disorder [Recovering/Resolving]
  - Hair colour changes [Recovering/Resolving]
  - Alopecia [Recovering/Resolving]
  - Madarosis [Recovering/Resolving]
  - Hair texture abnormal [Recovering/Resolving]

NARRATIVE: CASE EVENT DATE: 2010
